FAERS Safety Report 18259469 (Version 1)
Quarter: 2020Q3

REPORT INFORMATION
  Report Type: Spontaneous
  Country: FR (occurrence: FR)
  Receive Date: 20200911
  Receipt Date: 20200911
  Transmission Date: 20201103
  Serious: Yes (Hospitalization)
  Sender: FDA-Public Use
  Company Number: FR-ANIPHARMA-2020-FR-000212

PATIENT
  Sex: Female
  Weight: 1.7 kg

DRUGS (4)
  1. MORPHINE SULFATE ORAL SOLUTION (NON?SPECIFIC) [Suspect]
     Active Substance: MORPHINE SULFATE
     Indication: ANALGESIC THERAPY
     Route: 015
  2. NEFOPAM [Suspect]
     Active Substance: NEFOPAM
     Indication: ANALGESIC THERAPY
     Dosage: 120 MG DAILY
     Route: 015
  3. OXYCODONE (NON?SPECIFIC) [Suspect]
     Active Substance: OXYCODONE
     Indication: ANALGESIC THERAPY
     Dosage: 5 MG 4 TIMES DAILY
     Route: 015
  4. ATOSIBAN [Concomitant]
     Active Substance: ATOSIBAN

REACTIONS (4)
  - Urinary bladder rupture [Recovered/Resolved]
  - Foetal megacystis [Recovered/Resolved]
  - Foetal exposure during pregnancy [Recovered/Resolved]
  - Urinary ascites [Recovered/Resolved]
